FAERS Safety Report 9701412 (Version 2)
Quarter: 2013Q4

REPORT INFORMATION
  Report Type: Spontaneous
  Country: US (occurrence: US)
  Receive Date: 20131121
  Receipt Date: 20131121
  Transmission Date: 20140711
  Serious: No
  Sender: FDA-Public Use
  Company Number: US-GILEAD-2008-0016336

PATIENT
  Sex: Female
  Weight: 73.94 kg

DRUGS (20)
  1. LETAIRIS [Suspect]
     Indication: PULMONARY ARTERIAL HYPERTENSION
     Route: 048
     Dates: start: 20080225
  2. MUCINEX [Concomitant]
     Route: 048
  3. CELLCEPT [Concomitant]
     Route: 048
  4. PREDNISONE [Concomitant]
     Route: 048
  5. OXYGEN [Concomitant]
     Route: 045
  6. CRESTOR [Concomitant]
     Route: 048
  7. HYTRIN [Concomitant]
     Route: 048
  8. SINGULAIR [Concomitant]
     Route: 048
  9. PLAQUENIL [Concomitant]
     Route: 048
  10. LASIX [Concomitant]
     Route: 048
  11. NORVASC [Concomitant]
     Route: 048
  12. METOLAZONE [Concomitant]
  13. ALBUTEROL [Concomitant]
     Route: 055
  14. TOPROL [Concomitant]
     Route: 048
  15. ALTACE [Concomitant]
     Route: 048
  16. CALCIUM [Concomitant]
     Route: 048
  17. ASPIRIN [Concomitant]
     Route: 048
  18. MULTIVITAMINS [Concomitant]
     Route: 048
  19. PROCRIT [Concomitant]
     Route: 030
  20. POTASSIUM CHLORIDE [Concomitant]
     Route: 048

REACTIONS (3)
  - Nasal discomfort [Unknown]
  - Local swelling [Unknown]
  - Constipation [Unknown]
